FAERS Safety Report 6683190-X (Version None)
Quarter: 2010Q2

REPORT INFORMATION
  Report Type: 
  Country: None (occurrence: None)
  Receive Date: 20100415
  Receipt Date: 20100125
  Transmission Date: 20101027
  Serious: No
  Sender: FDA-Public Use
  Company Number: US-ALLERGAN-0912288US

PATIENT
  Age: 32 Year
  Sex: Female

DRUGS (1)
  1. LATISSE [Suspect]
     Indication: DRUG USE FOR UNKNOWN INDICATION
     Dosage: UNK
     Dates: start: 20090814

REACTIONS (2)
  - MADAROSIS [None]
  - TRICHORRHEXIS [None]
